FAERS Safety Report 20998614 (Version 4)
Quarter: 2022Q4

REPORT INFORMATION
  Report Type: Report from Study
  Country: US (occurrence: US)
  Receive Date: 20220623
  Receipt Date: 20221001
  Transmission Date: 20230113
  Serious: Yes (Hospitalization)
  Sender: FDA-Public Use
  Company Number: US-NOVARTISTESTPH-NVSC2022US143215

PATIENT
  Sex: Male

DRUGS (1)
  1. ENTRESTO [Suspect]
     Active Substance: SACUBITRIL\VALSARTAN
     Indication: Product used for unknown indication
     Dosage: 1 DOSAGE FORM, BID
     Route: 048

REACTIONS (6)
  - Haemoglobin decreased [Recovered/Resolved]
  - Peripheral swelling [Recovered/Resolved]
  - Dehydration [Unknown]
  - Skin odour abnormal [Unknown]
  - Joint swelling [Recovered/Resolved]
  - Swelling face [Recovered/Resolved]
